FAERS Safety Report 24319072 (Version 1)
Quarter: 2024Q3

REPORT INFORMATION
  Report Type: Spontaneous
  Country: US (occurrence: US)
  Receive Date: 20240913
  Receipt Date: 20240913
  Transmission Date: 20241017
  Serious: Yes (Life-Threatening, Hospitalization, Other)
  Sender: MERCK
  Company Number: US-009507513-2409USA002293

PATIENT
  Sex: Female
  Weight: 99.773 kg

DRUGS (1)
  1. BRIDION [Suspect]
     Active Substance: SUGAMMADEX
     Dosage: 100 MG THEN ADDITIONAL 100 MG (FOR TOTAL OF 200 MG)
     Dates: start: 20240904, end: 20240904

REACTIONS (2)
  - Cardiac arrest [Recovered/Resolved]
  - Heart rate decreased [Recovered/Resolved]

NARRATIVE: CASE EVENT DATE: 20240904
